FAERS Safety Report 6394122-6 (Version None)
Quarter: 2009Q4

REPORT INFORMATION
  Report Type: 
  Country: None (occurrence: None)
  Receive Date: 20091008
  Receipt Date: 20090928
  Transmission Date: 20100525
  Serious: Yes (Other)
  Sender: FDA-Public Use
  Company Number: FR-PFIZER INC-2009274480

PATIENT

DRUGS (3)
  1. XANAX [Suspect]
     Indication: AGORAPHOBIA
     Dosage: 0.125 MG, 1X/DAY
     Route: 064
     Dates: start: 20070415, end: 20080103
  2. EFFEXOR [Suspect]
     Indication: AGORAPHOBIA
     Dosage: 12.5 MG, 1X/DAY
     Route: 064
     Dates: start: 20070415, end: 20080103
  3. BRICANYL [Suspect]
     Dosage: 2 DOSAGE FORM
     Route: 064

REACTIONS (2)
  - CLEFT LIP AND PALATE [None]
  - DRUG EXPOSURE DURING PREGNANCY [None]
